FAERS Safety Report 8340324 (Version 4)
Quarter: 2013Q2

REPORT INFORMATION
  Report Type: Spontaneous
  Country: JP (occurrence: JP)
  Receive Date: 20120117
  Receipt Date: 20130408
  Transmission Date: 20140414
  Serious: Yes (Hospitalization, Other)
  Sender: FDA-Public Use
  Company Number: PHHY2012JP002861

PATIENT
  Age: 28 Year
  Sex: Male

DRUGS (7)
  1. GLIVEC [Suspect]
     Indication: ACUTE LYMPHOCYTIC LEUKAEMIA
     Dosage: 600 MG, DAILY
     Route: 048
     Dates: start: 20111012, end: 20111012
  2. GLIVEC [Suspect]
     Dosage: 300 MG, DAILY
     Route: 048
     Dates: start: 20111128
  3. CYCLOPHOSPHAMIDE [Suspect]
     Indication: ACUTE LYMPHOCYTIC LEUKAEMIA
     Dosage: 1800 MG, DAILY
     Route: 042
     Dates: start: 20110930
  4. VINCRISTINE SULFATE [Suspect]
     Indication: ACUTE LYMPHOCYTIC LEUKAEMIA
     Dosage: 2 MG, DAILY
     Route: 042
     Dates: start: 20110930
  5. DAUNOMYCIN [Suspect]
     Indication: ACUTE LYMPHOCYTIC LEUKAEMIA
     Dosage: 90 MG, DAILY
     Route: 042
     Dates: start: 20110930, end: 20111002
  6. DASATINIB [Suspect]
     Dosage: 70 MG, QD
  7. DASATINIB [Suspect]
     Dosage: 100 MG, QD
     Route: 048

REACTIONS (23)
  - Pneumonia [Unknown]
  - Septic shock [Unknown]
  - Disseminated intravascular coagulation [Unknown]
  - Infection [Recovering/Resolving]
  - Escherichia sepsis [Unknown]
  - Multi-organ failure [Unknown]
  - Bone marrow failure [Recovered/Resolved]
  - Cerebral haemorrhage [Recovering/Resolving]
  - Acute lymphocytic leukaemia [Unknown]
  - Neoplasm recurrence [Unknown]
  - Platelet count decreased [Unknown]
  - Aspartate aminotransferase increased [Unknown]
  - Alanine aminotransferase increased [Unknown]
  - Blood bilirubin increased [Unknown]
  - Paralysis flaccid [Unknown]
  - Asthenia [Unknown]
  - Hypokinesia [Unknown]
  - Myalgia [Recovered/Resolved]
  - Drug intolerance [Unknown]
  - Pleural effusion [Recovered/Resolved]
  - Axonal neuropathy [Unknown]
  - Critical illness myopathy [Unknown]
  - Nausea [Not Recovered/Not Resolved]
